FAERS Safety Report 13327219 (Version 1)
Quarter: 2017Q1

REPORT INFORMATION
  Report Type: Spontaneous
  Country: US (occurrence: US)
  Receive Date: 20170313
  Receipt Date: 20170313
  Transmission Date: 20170428
  Serious: No
  Sender: FDA-Public Use
  Company Number: US-JNJFOC-20161210306

PATIENT
  Age: 53 Year
  Sex: Male
  Weight: 68.04 kg

DRUGS (2)
  1. MENS ROGAINE EXTRA STRENGTH [Suspect]
     Active Substance: MINOXIDIL
     Route: 061
  2. MENS ROGAINE EXTRA STRENGTH [Suspect]
     Active Substance: MINOXIDIL
     Indication: ALOPECIA
     Dosage: DOSAGE 1/2 CAPFUL
     Route: 061
     Dates: start: 201606, end: 20161205

REACTIONS (4)
  - Skin ulcer [Recovered/Resolved]
  - Product use issue [Recovered/Resolved]
  - Skin haemorrhage [Recovered/Resolved]
  - Intentional product misuse [Recovered/Resolved]

NARRATIVE: CASE EVENT DATE: 201606
